FAERS Safety Report 8059017-0 (Version None)
Quarter: 2012Q1

REPORT INFORMATION
  Report Type: 
  Country: None (occurrence: None)
  Receive Date: 20120120
  Receipt Date: 20110401
  Transmission Date: 20120608
  Serious: No
  Sender: FDA-Public Use
  Company Number: US-BAUSCH-2011BL002265

PATIENT
  Age: 49 Year
  Sex: Female

DRUGS (1)
  1. ALAWAY [Suspect]
     Indication: EYE ALLERGY
     Route: 048
     Dates: start: 20110330, end: 20110330

REACTIONS (6)
  - DIZZINESS [None]
  - SOMNOLENCE [None]
  - EYE IRRITATION [None]
  - EYE PAIN [None]
  - ASTHENIA [None]
  - DRUG HYPERSENSITIVITY [None]
